FAERS Safety Report 8488454-5 (Version None)
Quarter: 2012Q3

REPORT INFORMATION
  Report Type: 
  Country: None (occurrence: None)
  Receive Date: 20120705
  Receipt Date: 20120626
  Transmission Date: 20120928
  Serious: Yes (Hospitalization)
  Sender: FDA-Public Use
  Company Number: JP-EISAI INC-E7389-02233-CLI-JP

PATIENT
  Sex: Female
  Weight: 49 kg

DRUGS (27)
  1. KYTRIL [Concomitant]
     Route: 048
  2. MOTILIUM [Concomitant]
     Route: 065
  3. ALOXI [Concomitant]
     Indication: PROPHYLAXIS
     Route: 041
  4. HALAVEN [Suspect]
     Indication: METASTASES TO LIVER
     Route: 041
     Dates: start: 20111118, end: 20111118
  5. PRIMPERAN TAB [Concomitant]
     Route: 048
  6. FAMOTIDINE [Concomitant]
     Route: 041
  7. MORPHINE HYDROCHLORIDE [Concomitant]
     Route: 041
  8. CEFPIROME SULFATE [Concomitant]
     Route: 041
  9. FLURBIPROFEN [Concomitant]
     Route: 041
  10. HALAVEN [Suspect]
     Indication: BREAST CANCER RECURRENT
     Route: 041
     Dates: start: 20111202, end: 20120203
  11. HALAVEN [Suspect]
     Indication: METASTASES TO BONE
  12. HALAVEN [Suspect]
  13. NEXIUM [Concomitant]
     Indication: PROPHYLAXIS
     Route: 048
  14. SENNOSIDE [Concomitant]
     Indication: PROPHYLAXIS
     Route: 048
  15. PREGABALIN [Concomitant]
     Route: 048
  16. FENTANYL-100 [Concomitant]
     Route: 065
  17. OXYCONTIN [Concomitant]
     Route: 048
  18. EMEND [Concomitant]
     Indication: PROPHYLAXIS
     Route: 048
  19. BETAMETHASONE [Concomitant]
     Route: 048
  20. FENTANYL [Concomitant]
     Route: 041
  21. CELEBREX [Concomitant]
     Route: 048
  22. PYDOXAL [Concomitant]
     Route: 048
  23. GOSHAJINKIGAN [Concomitant]
     Route: 048
  24. CYMBALTA [Concomitant]
     Route: 048
  25. ELNEOPA NO 2 [Concomitant]
     Route: 041
  26. KYTRIL [Concomitant]
     Indication: PROPHYLAXIS
     Route: 041
  27. MORPHINE [Concomitant]
     Route: 048

REACTIONS (1)
  - TUMOUR LYSIS SYNDROME [None]
